FAERS Safety Report 9521798 (Version 1)
Quarter: 2013Q3

REPORT INFORMATION
  Report Type: Spontaneous
  Country: US (occurrence: None)
  Receive Date: 20130911
  Receipt Date: 20130911
  Transmission Date: 20140515
  Serious: No
  Sender: FDA-Public Use
  Company Number: AEUSA201300163

PATIENT
  Age: 46 Year
  Sex: Female
  Weight: 59.88 kg

DRUGS (3)
  1. GAMUNEX-C [Suspect]
     Indication: MYASTHENIA GRAVIS
     Route: 042
     Dates: start: 20130405, end: 20130405
  2. PREDNISONE [Concomitant]
  3. MESTINON [Concomitant]

REACTIONS (2)
  - Rash erythematous [None]
  - Pruritus [None]
